FAERS Safety Report 20429936 (Version 3)
Quarter: 2022Q2

REPORT INFORMATION
  Report Type: Spontaneous
  Country: US (occurrence: US)
  Receive Date: 20220204
  Receipt Date: 20220421
  Transmission Date: 20220720
  Serious: No
  Sender: FDA-Public Use
  Company Number: US-PFIZER INC-202200034701

PATIENT
  Age: 9 Year
  Sex: Female
  Weight: 23.129 kg

DRUGS (1)
  1. GENOTROPIN [Suspect]
     Active Substance: SOMATROPIN
     Indication: Growth hormone deficiency
     Dosage: 1.1 MG (INJECTION 6 TIMES PER WEEK)
     Dates: start: 201909

REACTIONS (5)
  - Product dose omission issue [Unknown]
  - Device use issue [Unknown]
  - Poor quality device used [Not Recovered/Not Resolved]
  - Device issue [Not Recovered/Not Resolved]
  - Device information output issue [Not Recovered/Not Resolved]

NARRATIVE: CASE EVENT DATE: 20210101
